FAERS Safety Report 15273310 (Version 1)
Quarter: 2018Q3

REPORT INFORMATION
  Report Type: Report from Study
  Country: GB (occurrence: GB)
  Receive Date: 20180813
  Receipt Date: 20180813
  Transmission Date: 20181010
  Serious: Yes (Other)
  Sender: FDA-Public Use
  Company Number: GB-SHIRE-GB201711980

PATIENT

DRUGS (1)
  1. CINRYZE [Suspect]
     Active Substance: HUMAN C1-ESTERASE INHIBITOR
     Indication: HEREDITARY ANGIOEDEMA
     Dosage: 1000 UNITS, AS REQ^D (WHEN REQUIRED)
     Route: 042
     Dates: start: 20150115

REACTIONS (3)
  - Viral infection [Recovered/Resolved]
  - Incorrect route of drug administration [Not Recovered/Not Resolved]
  - Hereditary angioedema [Recovered/Resolved]
